FAERS Safety Report 6877274-0 (Version None)
Quarter: 2010Q3

REPORT INFORMATION
  Report Type: 
  Country: None (occurrence: None)
  Receive Date: 20100727
  Receipt Date: 20090817
  Transmission Date: 20110219
  Serious: No
  Sender: FDA-Public Use
  Company Number: US-ABBOTT-09P-163-0592845-00

PATIENT
  Sex: Female
  Weight: 71.732 kg

DRUGS (2)
  1. SYNTHROID [Suspect]
     Indication: HYPOTHYROIDISM
     Route: 048
     Dates: start: 19890101
  2. SYNTHROID [Suspect]
     Route: 048

REACTIONS (6)
  - ARTHRITIS [None]
  - BACK PAIN [None]
  - BURSITIS [None]
  - ERYTHEMA [None]
  - GASTROOESOPHAGEAL REFLUX DISEASE [None]
  - REACTION TO AZO-DYES [None]
